FAERS Safety Report 10053159 (Version 1)
Quarter: 2014Q2

REPORT INFORMATION
  Report Type: Report from Study
  Country: US (occurrence: US)
  Receive Date: 20140402
  Receipt Date: 20140402
  Transmission Date: 20141212
  Serious: Yes (Other)
  Sender: FDA-Public Use
  Company Number: US-ABBVIE-14P-163-1217103-00

PATIENT
  Sex: Female

DRUGS (3)
  1. HUMIRA [Suspect]
     Indication: ANKYLOSING SPONDYLITIS
     Dates: start: 2002
  2. HUMIRA [Suspect]
     Indication: ANKYLOSING SPONDYLITIS
     Dosage: WHEN NOT USING PRE-FILLED SYRINGE
  3. DICLOFENAC [Concomitant]
     Indication: ANKYLOSING SPONDYLITIS

REACTIONS (1)
  - Spinal compression fracture [Not Recovered/Not Resolved]
